FAERS Safety Report 8195208-6 (Version None)
Quarter: 2012Q1

REPORT INFORMATION
  Report Type: 
  Country: None (occurrence: None)
  Receive Date: 20120308
  Receipt Date: 20111206
  Transmission Date: 20120608
  Serious: No
  Sender: FDA-Public Use
  Company Number: US-GLAXOSMITHKLINE-A0956856A

PATIENT
  Sex: Male

DRUGS (1)
  1. NICORETTE [Suspect]
     Indication: TOBACCO ABUSE
     Dates: start: 20111101

REACTIONS (3)
  - GLOSSODYNIA [None]
  - GLOSSITIS [None]
  - DRUG ADMINISTRATION ERROR [None]
